FAERS Safety Report 4968815-9 (Version None)
Quarter: 2006Q2

REPORT INFORMATION
  Report Type: 
  Country: None (occurrence: None)
  Receive Date: 20060411
  Receipt Date: 20060331
  Transmission Date: 20061013
  Serious: Yes (Other)
  Sender: FDA-Public Use
  Company Number: FR-GLAXOSMITHKLINE-B0419052A

PATIENT
  Age: 75 Year
  Sex: Female

DRUGS (12)
  1. AVANDIA [Suspect]
     Dosage: 4MG PER DAY
     Route: 048
  2. BACTRIM [Suspect]
     Indication: SURGERY
     Route: 065
     Dates: start: 20051010, end: 20051014
  3. COUMADIN [Suspect]
     Dosage: .75UNIT PER DAY
     Route: 065
  4. GENTAMICIN [Suspect]
     Indication: SURGERY
     Route: 065
     Dates: start: 20051010, end: 20051014
  5. RENITEC [Suspect]
     Dosage: .5UNIT PER DAY
     Route: 065
  6. OGAST [Suspect]
     Dosage: 1UNIT PER DAY
     Route: 065
  7. VECTARION [Concomitant]
     Route: 065
  8. TAHOR [Concomitant]
     Route: 065
  9. CARDENSIEL [Concomitant]
     Route: 065
  10. VASTAREL [Concomitant]
     Route: 065
  11. LASILIX [Concomitant]
     Route: 065
  12. AMLOR [Concomitant]
     Route: 065

REACTIONS (2)
  - COAGULOPATHY [None]
  - OVERDOSE [None]
